FAERS Safety Report 9932872 (Version 1)
Quarter: 2014Q1

REPORT INFORMATION
  Report Type: Spontaneous
  Country: US (occurrence: GB)
  Receive Date: 20140228
  Receipt Date: 20140228
  Transmission Date: 20141002
  Serious: No
  Sender: FDA-Public Use
  Company Number: US-GLAXOSMITHKLINE-B0893670A

PATIENT
  Age: 68 Year
  Sex: Male

DRUGS (1)
  1. IMIGRAN RECOVERY [Suspect]
     Indication: MIGRAINE

REACTIONS (1)
  - Off label use [Unknown]
